FAERS Safety Report 9884435 (Version 3)
Quarter: 2016Q1

REPORT INFORMATION
  Report Type: Report from Study
  Country: US (occurrence: US)
  Receive Date: 20140210
  Receipt Date: 20160311
  Transmission Date: 20160526
  Serious: Yes (Other)
  Sender: FDA-Public Use
  Company Number: US-ASTELLAS-2014US001186

PATIENT
  Age: 60 Year
  Sex: Female

DRUGS (2)
  1. ERLOTINIB [Suspect]
     Active Substance: ERLOTINIB
     Indication: LUNG NEOPLASM MALIGNANT
     Route: 048
     Dates: start: 20140102, end: 20140202
  2. ERLOTINIB [Suspect]
     Active Substance: ERLOTINIB
     Route: 048
     Dates: start: 20140204, end: 20140508

REACTIONS (17)
  - Photophobia [Recovered/Resolved]
  - Rash [Recovered/Resolved]
  - Eye disorder [Unknown]
  - Hair colour changes [Not Recovered/Not Resolved]
  - Acne [Unknown]
  - Skin exfoliation [Recovering/Resolving]
  - Hypertrichosis [Unknown]
  - Dry skin [Unknown]
  - Malignant neoplasm progression [Unknown]
  - Hair growth abnormal [Unknown]
  - Madarosis [Unknown]
  - Erythema [Not Recovered/Not Resolved]
  - Eyelids pruritus [Recovering/Resolving]
  - Refractory cancer [Unknown]
  - Hair growth abnormal [Not Recovered/Not Resolved]
  - Alopecia [Unknown]
  - Skin exfoliation [Not Recovered/Not Resolved]

NARRATIVE: CASE EVENT DATE: 20140107
